FAERS Safety Report 11046342 (Version 3)
Quarter: 2015Q2

REPORT INFORMATION
  Report Type: Spontaneous
  Country: IT (occurrence: IT)
  Receive Date: 20150419
  Receipt Date: 20150505
  Transmission Date: 20150821
  Serious: Yes (Hospitalization)
  Sender: FDA-Public Use
  Company Number: PHHY2015IT046231

PATIENT
  Age: 57 Year
  Sex: Female

DRUGS (4)
  1. TOLEP [Suspect]
     Active Substance: OXCARBAZEPINE
     Indication: DRUG ABUSE
     Dosage: 3600 MG, ONCE/SINGLE
     Route: 048
     Dates: start: 20150108, end: 20150108
  2. LIBRIUM [Suspect]
     Active Substance: CHLORDIAZEPOXIDE HYDROCHLORIDE
     Indication: DRUG ABUSE
     Dosage: 5 DF, ONCE/SINGLE
     Route: 048
     Dates: start: 20150108, end: 20150108
  3. CITALOPRAM [Suspect]
     Active Substance: CITALOPRAM HYDROBROMIDE
     Indication: DRUG ABUSE
     Dosage: 120 MG, ONCE/SINGLE
     Route: 048
     Dates: start: 20150108, end: 20150108
  4. SONIREM [Suspect]
     Active Substance: ZOLPIDEM TARTRATE
     Indication: DRUG ABUSE
     Dosage: 60 DRP, ONCE/SINGLE
     Route: 048
     Dates: start: 20150108, end: 20150108

REACTIONS (4)
  - Somnolence [Unknown]
  - Drug abuse [Unknown]
  - Intentional self-injury [Unknown]
  - Poisoning [Unknown]

NARRATIVE: CASE EVENT DATE: 20150108
